FAERS Safety Report 9240853 (Version 1)
Quarter: 2013Q1

REPORT INFORMATION
  Report Type: Spontaneous
  Country: US (occurrence: None)
  Receive Date: 20121120
  Receipt Date: 20121120
  Transmission Date: 20140127
  Serious: No
  Sender: FDA-Public Use
  Company Number: 1000037510

PATIENT
  Age: 40 Year
  Sex: Female

DRUGS (3)
  1. VIIBRYD [Suspect]
     Indication: ANXIETY
     Route: 048
     Dates: start: 201207, end: 201207
  2. TOPAMAX(TOPIRAMATE)(TOPIRAMATE) [Concomitant]
  3. ALLEGRA(FEXOFENADINE HYDROCHLORIDE)(FEXOFENADINE HYDROCHLORIDE) [Concomitant]

REACTIONS (3)
  - Diarrhoea [None]
  - Abdominal discomfort [None]
  - Off label use [None]
